FAERS Safety Report 8268702-7 (Version None)
Quarter: 2012Q2

REPORT INFORMATION
  Report Type: 
  Country: None (occurrence: None)
  Receive Date: 20120409
  Receipt Date: 20120127
  Transmission Date: 20120825
  Serious: Yes (Hospitalization)
  Sender: FDA-Public Use
  Company Number: IT-ROCHE-1037069

PATIENT
  Sex: Male

DRUGS (5)
  1. RIFAXIMIN [Concomitant]
     Dates: start: 20110919, end: 20110922
  2. NAPROXEN SODIUM [Suspect]
     Indication: PRODUCT USED FOR UNKNOWN INDICATION
     Route: 048
     Dates: start: 20111009, end: 20111109
  3. FLUPIRTINE MALEATE [Suspect]
     Indication: PRODUCT USED FOR UNKNOWN INDICATION
     Route: 048
     Dates: start: 20110909, end: 20111109
  4. TRAMADOL HCL [Concomitant]
     Dates: start: 20111031, end: 20111119
  5. CEFTRIAXONE [Concomitant]
     Dates: start: 20111102, end: 20111107

REACTIONS (2)
  - LEUKOPENIA [None]
  - NORMOCHROMIC NORMOCYTIC ANAEMIA [None]
